FAERS Safety Report 22006665 (Version 3)
Quarter: 2023Q1

REPORT INFORMATION
  Report Type: Report from Study
  Country: IT (occurrence: IT)
  Receive Date: 20230217
  Receipt Date: 20230310
  Transmission Date: 20230418
  Serious: Yes (Other)
  Sender: FDA-Public Use
  Company Number: IT-009507513-2301ITA010151

PATIENT
  Age: 34 Year
  Sex: Female

DRUGS (15)
  1. PACLITAXEL [Suspect]
     Active Substance: PACLITAXEL
     Indication: Breast cancer
     Dosage: 127.2 MG, Q3W ON DAYS 1,8,15
     Route: 042
     Dates: start: 20220513, end: 20220812
  2. EPIRUBICIN [Suspect]
     Active Substance: EPIRUBICIN
     Indication: Breast cancer
     Dosage: 145 MILLIGRAM, Q3W
     Route: 042
     Dates: start: 20220915, end: 20221117
  3. CYCLOPHOSPHAMIDE [Suspect]
     Active Substance: CYCLOPHOSPHAMIDE
     Indication: Breast cancer
     Dosage: 970 MILLIGRAM, Q3W
     Route: 042
     Dates: start: 20220915, end: 20221117
  4. CARBOPLATIN [Suspect]
     Active Substance: CARBOPLATIN
     Indication: Breast cancer
     Dosage: 190.35 MILLIGRAM, Q3W ON DAYS 1,8,15
     Route: 042
     Dates: start: 20220513, end: 20220812
  5. PEMBROLIZUMAB [Suspect]
     Active Substance: PEMBROLIZUMAB
     Indication: Breast cancer
     Dosage: 200 MILLIGRAM, Q3W
     Route: 042
     Dates: start: 20220513
  6. PEMBROLIZUMAB [Suspect]
     Active Substance: PEMBROLIZUMAB
     Dosage: UNK
     Route: 065
  7. PEMBROLIZUMAB [Suspect]
     Active Substance: PEMBROLIZUMAB
     Dosage: UNK
     Route: 065
  8. PEMBROLIZUMAB [Suspect]
     Active Substance: PEMBROLIZUMAB
     Dosage: UNK
     Route: 065
  9. PEMBROLIZUMAB [Suspect]
     Active Substance: PEMBROLIZUMAB
     Dosage: UNK
     Route: 065
  10. METOCLOPRAMIDE HYDROCHLORIDE [Concomitant]
     Active Substance: METOCLOPRAMIDE HYDROCHLORIDE
     Indication: Nausea
     Dosage: UNK, QD, AS NEEDED
     Route: 065
     Dates: start: 20220708
  11. RABEPRAZOLO [Concomitant]
     Dosage: UNK, QD, 1 TABLET TWICE A DAY
     Route: 065
     Dates: start: 20220707
  12. TRIPTORELIN [Concomitant]
     Active Substance: TRIPTORELIN
     Indication: Prophylaxis
     Dosage: UNK, MONTHLY, 1 VIAL Q28
     Route: 065
  13. CHOLECALCIFEROL [Concomitant]
     Active Substance: CHOLECALCIFEROL
     Indication: Vitamin supplementation
     Dosage: UNK,1 VIAL Q14
     Route: 065
     Dates: start: 20220513
  14. LEVOTHYROXINE SODIUM [Concomitant]
     Active Substance: LEVOTHYROXINE SODIUM
     Indication: Hypothyroidism
     Dosage: 50 MICROGRAM, QD, 50 MICROGRAM, QD
     Route: 065
     Dates: start: 20220906
  15. BROMAZEPAM [Concomitant]
     Active Substance: BROMAZEPAM
     Indication: Anxiety
     Dosage: UNK, QD, 7 DROPS AS NEEDED
     Route: 065
     Dates: start: 20220708

REACTIONS (1)
  - Hypothyroidism [Recovered/Resolved]

NARRATIVE: CASE EVENT DATE: 20220902
